FAERS Safety Report 18555272 (Version 3)
Quarter: 2021Q3

REPORT INFORMATION
  Report Type: Spontaneous
  Country: CA (occurrence: CA)
  Receive Date: 20201127
  Receipt Date: 20210906
  Transmission Date: 20211014
  Serious: Yes (Life-Threatening, Hospitalization)
  Sender: FDA-Public Use
  Company Number: CA-TEVA-2020-CA-1851313

PATIENT
  Age: 57 Year
  Sex: Female

DRUGS (2)
  1. ATENOLOL. [Suspect]
     Active Substance: ATENOLOL
     Indication: OCCUPATIONAL EXPOSURE TO PRODUCT
     Dosage: HANDLED ATENOLOL AND RUBBED HER EYES
     Route: 065
  2. IRBESARTAN. [Suspect]
     Active Substance: IRBESARTAN
     Indication: OCCUPATIONAL EXPOSURE TO PRODUCT
     Dosage: HANDLED IRBESARTAN AND RUBBED HER EYES
     Route: 065

REACTIONS (4)
  - Anaphylactic reaction [Recovered/Resolved]
  - Occupational exposure to product [Unknown]
  - Drug hypersensitivity [Unknown]
  - Respiratory distress [Recovered/Resolved]
